FAERS Safety Report 5289268-X (Version None)
Quarter: 2007Q2

REPORT INFORMATION
  Report Type: 
  Country: None (occurrence: None)
  Receive Date: 20070403
  Receipt Date: 20070403
  Transmission Date: 20071010
  Serious: Yes (Other)
  Sender: FDA-Public Use
  Company Number: None

PATIENT
  Age: 71 Year
  Sex: Male
  Weight: 67.6 kg

DRUGS (19)
  1. SARGRAMOSTIM   250 MCG.   BERLEX [Suspect]
     Indication: METASTATIC SQUAMOUS CELL CARCINOMA
     Dosage: BASED ON BODY SURFACE AREA   MONTHLY  SQ
     Route: 058
     Dates: start: 20061108, end: 20070222
  2. SARGRAMOSTIM   250 MCG.   BERLEX [Suspect]
     Indication: TONGUE CANCER METASTATIC
     Dosage: BASED ON BODY SURFACE AREA   MONTHLY  SQ
     Route: 058
     Dates: start: 20061108, end: 20070222
  3. ASPIRIN [Concomitant]
  4. AVALIDE [Concomitant]
  5. AZMACORT [Concomitant]
  6. DUCOSATE [Concomitant]
  7. FLOMX [Concomitant]
  8. EYE DROPS [Concomitant]
  9. ACIPHEX [Concomitant]
  10. COMBIVENT [Concomitant]
  11. PERCOCET [Concomitant]
  12. FENTANYL [Concomitant]
  13. LISINOPRIL [Concomitant]
  14. OXYBUTYNIN CHLORIDE [Concomitant]
  15. PAROXETINE [Concomitant]
  16. TEMAZEPAM [Concomitant]
  17. VIAGRA [Concomitant]
  18. CHANTIX [Concomitant]
  19. PERI-COLACE [Concomitant]

REACTIONS (6)
  - ANAEMIA [None]
  - HYPOTENSION [None]
  - INFLAMMATION [None]
  - PALLOR [None]
  - REFUSAL OF TREATMENT BY PATIENT [None]
  - RENAL FAILURE CHRONIC [None]
